FAERS Safety Report 13692434 (Version 4)
Quarter: 2018Q3

REPORT INFORMATION
  Report Type: Spontaneous
  Country: RU (occurrence: RU)
  Receive Date: 20170627
  Receipt Date: 20180713
  Transmission Date: 20181010
  Serious: Yes (Other)
  Sender: FDA-Public Use
  Company Number: RU-ASTRAZENECA-2017SE65063

PATIENT
  Age: 63 Year
  Sex: Female
  Weight: 91 kg

DRUGS (11)
  1. MONOPRIL [Concomitant]
     Active Substance: FOSINOPRIL SODIUM
  2. BETALOC ZOK [Concomitant]
     Active Substance: METOPROLOL SUCCINATE
  3. THROMBO ASS [Concomitant]
     Active Substance: ASPIRIN
  4. CARDIOMAGNYL [Concomitant]
     Active Substance: ASPIRIN\MAGNESIUM HYDROXIDE
  5. BRILINTA [Suspect]
     Active Substance: TICAGRELOR
     Indication: ANGINA UNSTABLE
     Route: 048
     Dates: start: 201703
  6. ENAP [Concomitant]
     Active Substance: ENALAPRIL
  7. ATORIS [Concomitant]
     Active Substance: ATORVASTATIN CALCIUM
  8. BRILINTA [Suspect]
     Active Substance: TICAGRELOR
     Indication: STENT PLACEMENT
     Route: 048
     Dates: start: 201703
  9. EGYLOC [Concomitant]
  10. AMLODIP [Concomitant]
  11. VEROSPIRON [Concomitant]
     Active Substance: SPIRONOLACTONE

REACTIONS (4)
  - Vascular stent thrombosis [Unknown]
  - Off label use [Unknown]
  - Product use issue [Unknown]
  - Vascular occlusion [Recovered/Resolved]

NARRATIVE: CASE EVENT DATE: 201703
